FAERS Safety Report 5942364-3 (Version None)
Quarter: 2008Q4

REPORT INFORMATION
  Report Type: 
  Country: None (occurrence: None)
  Receive Date: 20081103
  Receipt Date: 20081027
  Transmission Date: 20090506
  Serious: Yes (Death)
  Sender: FDA-Public Use
  Company Number: MSTR-NO-0810S-0106

PATIENT
  Age: 69 Year
  Sex: Male
  Weight: 78 kg

DRUGS (1)
  1. METASTRON [Suspect]
     Indication: METASTATIC PAIN
     Dosage: 3.8 ML, SINGLE DOSE, I.V.
     Route: 042
     Dates: start: 20080515, end: 20080515

REACTIONS (1)
  - LUNG NEOPLASM MALIGNANT [None]
